FAERS Safety Report 5683550-X (Version None)
Quarter: 2008Q1

REPORT INFORMATION
  Report Type: 
  Country: None (occurrence: None)
  Receive Date: 20080326
  Receipt Date: 20080321
  Transmission Date: 20080703
  Serious: Yes (Death, Hospitalization, Other)
  Sender: FDA-Public Use
  Company Number: 2007SP017606

PATIENT
  Age: 22 Year
  Sex: Male
  Weight: 68 kg

DRUGS (27)
  1. TEMODAL [Suspect]
     Indication: ANAPLASTIC ASTROCYTOMA
     Dosage: SEE IMAGE
     Route: 048
     Dates: start: 20061111, end: 20061115
  2. TEMODAL [Suspect]
     Indication: ANAPLASTIC ASTROCYTOMA
     Dosage: SEE IMAGE
     Route: 048
     Dates: start: 20061209, end: 20061213
  3. TEMODAL [Suspect]
     Indication: ANAPLASTIC ASTROCYTOMA
     Dosage: SEE IMAGE
     Route: 048
     Dates: start: 20070106, end: 20070110
  4. TEMODAL [Suspect]
     Indication: ANAPLASTIC ASTROCYTOMA
     Dosage: SEE IMAGE
     Route: 048
     Dates: start: 20070203, end: 20070207
  5. TEMODAL [Suspect]
     Indication: ANAPLASTIC ASTROCYTOMA
     Dosage: SEE IMAGE
     Route: 048
     Dates: start: 20070303, end: 20070307
  6. TEMODAL [Suspect]
     Indication: ANAPLASTIC ASTROCYTOMA
     Dosage: SEE IMAGE
     Route: 048
     Dates: start: 20070331, end: 20070404
  7. TEMODAL [Suspect]
     Indication: ANAPLASTIC ASTROCYTOMA
     Dosage: SEE IMAGE
     Route: 048
     Dates: start: 20070503, end: 20070506
  8. DEPAKENE [Suspect]
  9. TEGRETOL [Suspect]
     Indication: CONVULSION
     Dosage: ; PO
     Route: 048
     Dates: start: 20070507, end: 20070522
  10. PHENOBARBITAL TAB [Suspect]
     Indication: CONVULSION
     Dosage: ; IM
     Route: 030
     Dates: start: 20070507, end: 20070509
  11. RINDERON [Concomitant]
  12. GASTER D [Concomitant]
  13. NAVOBAN [Concomitant]
  14. MAGNESIUM OXIDE [Concomitant]
  15. GLYSENNID [Concomitant]
  16. ALEVIATIN [Concomitant]
  17. GABAPEN [Concomitant]
  18. GASTER D [Concomitant]
  19. WAKOBITAL [Concomitant]
  20. NAUZELIN [Concomitant]
  21. VOLTAREN [Concomitant]
  22. PN-TWIN (GLUCOSE, ELECTROLYTES, AND AMINO ACID) [Concomitant]
  23. M.V.I. [Concomitant]
  24. SODIUM CHLORIDE [Concomitant]
  25. ELEMENMIC [Concomitant]
  26. CEFTAZIDIME SODIUM [Concomitant]
  27. DALACIN S [Concomitant]

REACTIONS (8)
  - ALTERED STATE OF CONSCIOUSNESS [None]
  - BRAIN OEDEMA [None]
  - CONVULSION [None]
  - DISEASE PROGRESSION [None]
  - HEMIPLEGIA [None]
  - HEPATIC FUNCTION ABNORMAL [None]
  - NEOPLASM PROGRESSION [None]
  - PLATELET COUNT DECREASED [None]
